FAERS Safety Report 10155831 (Version 1)
Quarter: 2014Q2

REPORT INFORMATION
  Report Type: Spontaneous
  Country: ZA (occurrence: ZA)
  Receive Date: 20140506
  Receipt Date: 20140506
  Transmission Date: 20141212
  Serious: Yes (Other)
  Sender: FDA-Public Use
  Company Number: ZA-PFIZER INC-2014122081

PATIENT
  Age: 45 Year
  Sex: Male

DRUGS (3)
  1. ASPAVOR [Suspect]
     Indication: LOW DENSITY LIPOPROTEIN INCREASED
     Dosage: 10 MG, UNK
     Route: 048
  2. ASPAVOR [Suspect]
     Dosage: 20 MG, UNK
     Route: 048
  3. CO-ENZYME Q10 [Concomitant]

REACTIONS (3)
  - Loss of consciousness [Unknown]
  - Headache [Recovered/Resolved]
  - Drug ineffective [Unknown]
